FAERS Safety Report 14356066 (Version 1)
Quarter: 2018Q1

REPORT INFORMATION
  Report Type: Spontaneous
  Country: GB (occurrence: GB)
  Receive Date: 20180105
  Receipt Date: 20180105
  Transmission Date: 20180509
  Serious: Yes (Hospitalization, Other)
  Sender: FDA-Public Use
  Company Number: GB-SA-2017SA235663

PATIENT
  Age: 44 Year
  Sex: Female

DRUGS (4)
  1. CITALOPRAM [Concomitant]
     Active Substance: CITALOPRAM HYDROBROMIDE
  2. RANITIDINE. [Concomitant]
     Active Substance: RANITIDINE
  3. LEMTRADA [Suspect]
     Active Substance: ALEMTUZUMAB
     Indication: MULTIPLE SCLEROSIS
     Route: 041
     Dates: start: 20170601, end: 20170603
  4. MIRTAZAPINE. [Concomitant]
     Active Substance: MIRTAZAPINE

REACTIONS (11)
  - Cough [Recovered/Resolved with Sequelae]
  - Bacterial pericarditis [Recovered/Resolved with Sequelae]
  - Pneumonia [Unknown]
  - Cardiac tamponade [Unknown]
  - Pyrexia [Recovered/Resolved with Sequelae]
  - Empyema [Unknown]
  - Chest pain [Recovered/Resolved with Sequelae]
  - Cardiac disorder [Unknown]
  - Deep vein thrombosis [Unknown]
  - Meningococcal infection [Recovered/Resolved with Sequelae]
  - Septic shock [Unknown]

NARRATIVE: CASE EVENT DATE: 2017
